FAERS Safety Report 4954515-8 (Version None)
Quarter: 2006Q1

REPORT INFORMATION
  Report Type: 
  Country: None (occurrence: None)
  Receive Date: 20060322
  Receipt Date: 20060306
  Transmission Date: 20060701
  Serious: Yes (Hospitalization)
  Sender: FDA-Public Use
  Company Number: 2005EU001773

PATIENT
  Age: 56 Year
  Sex: Female

DRUGS (5)
  1. FK506 (TACROLIMUS) CAPSULE [Suspect]
     Indication: RENAL TRANSPLANT
     Dosage: SEE IMAGE
     Dates: end: 20041110
  2. FK506 (TACROLIMUS) CAPSULE [Suspect]
     Indication: RENAL TRANSPLANT
     Dosage: SEE IMAGE
     Dates: start: 20041111, end: 20050126
  3. DACLIZUMAB (DACLIZUMAB) [Suspect]
     Indication: RENAL TRANSPLANT
     Dosage: 75.00 MG, IV NOS
     Route: 042
     Dates: start: 20040702, end: 20040819
  4. MYCOPHENOLATE MOFETIL [Suspect]
     Indication: RENAL TRANSPLANT
     Dosage: 250.00 MG, BID, ORAL
     Route: 048
     Dates: start: 20041028, end: 20050117
  5. PREDNISONE TAB [Suspect]
     Indication: RENAL TRANSPLANT
     Dosage: 5.00 MG, ORAL
     Route: 048
     Dates: start: 20041223

REACTIONS (2)
  - PROTEINURIA [None]
  - PYELONEPHRITIS [None]
